FAERS Safety Report 5229083-6 (Version None)
Quarter: 2007Q1

REPORT INFORMATION
  Report Type: 
  Country: None (occurrence: None)
  Receive Date: 20061201
  Receipt Date: 20060815
  Transmission Date: 20070707
  Serious: No
  Sender: FDA-Public Use
  Company Number: US200608003247

PATIENT
  Age: 59 Year
  Sex: Female

DRUGS (9)
  1. CYMBALTA [Suspect]
     Indication: FIBROMYALGIA
     Dosage: 20 MG
     Dates: start: 20060501, end: 20060601
  2. PROCARDIA XL [Concomitant]
  3. AVAPRO [Concomitant]
  4. ALLEGRA [Concomitant]
  5. PRILOSEC [Concomitant]
  6. ASPIRIN [Concomitant]
  7. VENTOLIN /00139501/ (SALBUTAMOL) [Concomitant]
  8. FLOVENT [Concomitant]
  9. VANCENASE [Concomitant]

REACTIONS (6)
  - ABDOMINAL PAIN UPPER [None]
  - ANOREXIA [None]
  - DISSOCIATION [None]
  - FEELING ABNORMAL [None]
  - NAUSEA [None]
  - NERVOUSNESS [None]
